FAERS Safety Report 18257901 (Version 2)
Quarter: 2020Q3

REPORT INFORMATION
  Report Type: Spontaneous
  Country: US (occurrence: US)
  Receive Date: 20200911
  Receipt Date: 20200922
  Transmission Date: 20201103
  Serious: Yes (Other)
  Sender: FDA-Public Use
  Company Number: US-PFIZER INC-2020266330

PATIENT
  Age: 39 Year
  Sex: Female

DRUGS (2)
  1. RELPAX [Suspect]
     Active Substance: ELETRIPTAN HYDROBROMIDE
     Indication: HEADACHE
     Dosage: 40 MG (ONE TABLET) EVERY TWO HOURS AS NEEDED (LIMIT TWO TABLETS PER DAY)
     Route: 048
  2. RELPAX [Suspect]
     Active Substance: ELETRIPTAN HYDROBROMIDE
     Indication: NAUSEA

REACTIONS (3)
  - Mental impairment [Unknown]
  - Product use in unapproved indication [Unknown]
  - Off label use [Unknown]
